FAERS Safety Report 10230905 (Version 1)
Quarter: 2014Q2

REPORT INFORMATION
  Report Type: Spontaneous
  Country: US (occurrence: None)
  Receive Date: 20140506
  Receipt Date: 20140506
  Transmission Date: 20141212
  Serious: Yes (Hospitalization)
  Sender: FDA-Public Use
  Company Number: 1333836

PATIENT
  Sex: Female

DRUGS (4)
  1. AVASTIN (BEVACIZUMAB) [Suspect]
     Indication: PRODUCT USED FOR UNKNOWN INDICATION
     Dosage: DURATION: ABOUT A YEAR
  2. FOLINIC ACID (FOLINIC ACID) [Concomitant]
  3. FLUOROURACIL (FLUOROURACIL) [Concomitant]
  4. IRONOTECAN (IRONOTECAN HYDROCHLORIDE) [Concomitant]

REACTIONS (2)
  - Gastrointestinal perforation [None]
  - Fistula [None]
